FAERS Safety Report 14409639 (Version 2)
Quarter: 2018Q1

REPORT INFORMATION
  Report Type: Spontaneous
  Country: RU (occurrence: RU)
  Receive Date: 20180119
  Receipt Date: 20180228
  Transmission Date: 20180509
  Serious: Yes (Hospitalization)
  Sender: FDA-Public Use
  Company Number: RU-LUPIN LIMITED-2017-06098

PATIENT
  Age: 4 Year
  Sex: Male
  Weight: 15 kg

DRUGS (7)
  1. BROMHEXINE [Concomitant]
     Active Substance: BROMHEXINE
     Indication: RESPIRATORY DISORDER
     Dosage: 25 ML, UNK
     Route: 065
     Dates: start: 20170915, end: 20170920
  2. AQUA MARIS [Concomitant]
     Indication: RESPIRATORY DISORDER
     Dosage: UNK, QID
     Route: 065
     Dates: start: 20170915, end: 20170920
  3. PANADOL [Concomitant]
     Active Substance: ACETAMINOPHEN
     Indication: RESPIRATORY DISORDER
     Dosage: 100 MG, UNK
     Route: 065
     Dates: start: 20170915, end: 20170920
  4. IXIME [Suspect]
     Active Substance: CEFIXIME
     Indication: RESPIRATORY DISORDER
     Dosage: 6 ML, QD
     Route: 048
     Dates: start: 20170919, end: 20170921
  5. AMOXICILLIN AND CLAVULANATE POTASSIUM [Suspect]
     Active Substance: AMOXICILLIN\CLAVULANATE POTASSIUM
     Indication: RESPIRATORY DISORDER
     Dosage: UNK
     Route: 048
     Dates: start: 20170915, end: 20170919
  6. NUROFEN                            /00109201/ [Concomitant]
     Active Substance: IBUPROFEN
     Indication: RESPIRATORY DISORDER
     Dosage: UNK
     Route: 065
  7. NAZIVIN [Concomitant]
     Indication: RESPIRATORY DISORDER
     Dosage: 2 DROP, TID
     Route: 065
     Dates: start: 20170915, end: 20170920

REACTIONS (1)
  - Dyspnoea [Not Recovered/Not Resolved]

NARRATIVE: CASE EVENT DATE: 20170921
